FAERS Safety Report 16021144 (Version 1)
Quarter: 2019Q1

REPORT INFORMATION
  Report Type: Spontaneous
  Country: GB (occurrence: GB)
  Receive Date: 20190301
  Receipt Date: 20190301
  Transmission Date: 20190418
  Serious: Yes (Death, Hospitalization)
  Sender: FDA-Public Use
  Company Number: GB-ACCORD-109836

PATIENT
  Age: 51 Year
  Sex: Female
  Weight: 164 kg

DRUGS (6)
  1. CLOZAPINE. [Suspect]
     Active Substance: CLOZAPINE
     Indication: SCHIZOPHRENIA
     Dosage: 100MG MORNING, 350MG NIGHT
     Route: 048
     Dates: end: 20180804
  2. AMITRIPTYLINE [Concomitant]
     Active Substance: AMITRIPTYLINE
  3. PARAMAX [Concomitant]
  4. PROPRANOLOL [Concomitant]
     Active Substance: PROPRANOLOL HYDROCHLORIDE
  5. ELLESTE DUET [Concomitant]
  6. COLPERMIN [Concomitant]
     Active Substance: PEPPERMINT OIL

REACTIONS (11)
  - Vomiting [Unknown]
  - Malaise [Unknown]
  - Constipation [Not Recovered/Not Resolved]
  - Hypotension [Not Recovered/Not Resolved]
  - Haematemesis [Unknown]
  - Abdominal pain [Unknown]
  - Intestinal perforation [Fatal]
  - Tachycardia [Unknown]
  - Acute kidney injury [Unknown]
  - Small intestinal obstruction [Fatal]
  - Incarcerated hernia [Fatal]

NARRATIVE: CASE EVENT DATE: 20180805
